FAERS Safety Report 18890976 (Version 2)
Quarter: 2021Q2

REPORT INFORMATION
  Report Type: Spontaneous
  Country: FR (occurrence: CH)
  Receive Date: 20210215
  Receipt Date: 20210517
  Transmission Date: 20210717
  Serious: Yes (Other)
  Sender: FDA-Public Use
  Company Number: CH-TEVA-2021-CH-1877111

PATIENT
  Age: 53 Year
  Sex: Female

DRUGS (13)
  1. VELCADE [Suspect]
     Active Substance: BORTEZOMIB
     Indication: PLASMA CELL MYELOMA
     Dosage: RECEIVED FIVE CYCLES
     Route: 042
     Dates: start: 2009
  2. DEXAMETHASONE. [Suspect]
     Active Substance: DEXAMETHASONE
     Indication: PLASMA CELL MYELOMA
     Route: 048
     Dates: start: 2009
  3. ETOPOSIDE. [Suspect]
     Active Substance: ETOPOSIDE
     Indication: HAEMOPHAGOCYTIC LYMPHOHISTIOCYTOSIS
     Dosage: RECEIVED TWO DOSES
     Route: 065
  4. DEXAMETHASONE. [Suspect]
     Active Substance: DEXAMETHASONE
     Route: 048
     Dates: start: 2015
  5. PLERIXAFOR [Suspect]
     Active Substance: PLERIXAFOR
     Indication: PLASMA CELL MYELOMA
     Dosage: THREE INJECTIONS
     Route: 058
  6. RITUXIMAB. [Suspect]
     Active Substance: RITUXIMAB
     Indication: HAEMOPHAGOCYTIC LYMPHOHISTIOCYTOSIS
     Dosage: RECEIVED TWO DOSES
     Route: 065
  7. FILGRASTIM [Suspect]
     Active Substance: FILGRASTIM
     Dosage: 10 UG/KG DAILY; 10 MICROG/KG/DAY DURING 7 DAYS
     Route: 065
     Dates: start: 2015
  8. MELPHALAN. [Suspect]
     Active Substance: MELPHALAN
     Indication: DRUG THERAPY
     Dosage: FIRST AUTOLOGOUS HEMATOPOIETIC CELL TRANSPLANTATION
     Route: 042
     Dates: start: 2009
  9. MELPHALAN. [Suspect]
     Active Substance: MELPHALAN
     Dosage: SECOND AUTOLOGOUS HEMATOPOIETIC CELL TRANSPLANTATION
     Route: 065
     Dates: start: 2015
  10. THALIDOMIDE [Suspect]
     Active Substance: THALIDOMIDE
     Indication: PLASMA CELL MYELOMA
     Dosage: 100 MILLIGRAM DAILY;
     Route: 048
     Dates: start: 2015
  11. CYCLOPHOSPHAMIDE. [Suspect]
     Active Substance: CYCLOPHOSPHAMIDE
     Indication: PLASMA CELL MYELOMA
     Route: 048
  12. VELCADE [Suspect]
     Active Substance: BORTEZOMIB
     Route: 058
     Dates: start: 2015
  13. FILGRASTIM [Suspect]
     Active Substance: FILGRASTIM
     Indication: DRUG THERAPY
     Dosage: 10 MICROG/KG DURING 7 DAYS
     Route: 058
     Dates: start: 2009

REACTIONS (2)
  - Vanishing bile duct syndrome [Unknown]
  - Myelodysplastic syndrome [Recovering/Resolving]

NARRATIVE: CASE EVENT DATE: 2017
